FAERS Safety Report 5963485-5 (Version None)
Quarter: 2008Q4

REPORT INFORMATION
  Report Type: 
  Country: None (occurrence: None)
  Receive Date: 20081124
  Receipt Date: 20081117
  Transmission Date: 20090506
  Serious: Yes (Hospitalization)
  Sender: FDA-Public Use
  Company Number: FR-AMGEN-UK272143

PATIENT
  Sex: Male

DRUGS (3)
  1. NEUPOGEN [Suspect]
     Indication: AGRANULOCYTOSIS
     Route: 058
     Dates: start: 20080101, end: 20080101
  2. GRANOCYTE [Suspect]
     Indication: AGRANULOCYTOSIS
     Route: 065
  3. TRANXENE [Concomitant]

REACTIONS (1)
  - VENA CAVA THROMBOSIS [None]
